FAERS Safety Report 14466251 (Version 3)
Quarter: 2018Q1

REPORT INFORMATION
  Report Type: Report from Study
  Country: None (occurrence: CZ)
  Receive Date: 20180131
  Receipt Date: 20180313
  Transmission Date: 20180509
  Serious: Yes (Death, Other)
  Sender: FDA-Public Use
  Company Number: CZ-ABBVIE-18K-217-2240729-00

PATIENT
  Age: 52 Year
  Sex: Male
  Weight: 103 kg

DRUGS (2)
  1. MEDROL [Concomitant]
     Active Substance: METHYLPREDNISOLONE
     Indication: ANKYLOSING SPONDYLITIS
     Route: 048
     Dates: start: 200210, end: 20170621
  2. HUMIRA [Suspect]
     Active Substance: ADALIMUMAB
     Indication: ANKYLOSING SPONDYLITIS
     Route: 058
     Dates: start: 20170208, end: 20170620

REACTIONS (3)
  - Cardiac arrest [Fatal]
  - Pulmonary embolism [Fatal]
  - Syncope [Fatal]

NARRATIVE: CASE EVENT DATE: 20170622
